FAERS Safety Report 19602309 (Version 1)
Quarter: 2021Q3

REPORT INFORMATION
  Report Type: Spontaneous
  Country: ES (occurrence: ES)
  Receive Date: 20210723
  Receipt Date: 20210723
  Transmission Date: 20211014
  Serious: Yes (Death, Hospitalization)
  Sender: FDA-Public Use
  Company Number: ES-TEVA-2021-ES-1934251

PATIENT
  Age: 75 Year
  Sex: Male

DRUGS (3)
  1. PREDNISONA (886A) [Suspect]
     Active Substance: PREDNISONE
     Indication: PSORIATIC ARTHROPATHY
     Dosage: 15?10?10 MG DAILY:UNIT DOSE:35MILLIGRAM
     Route: 048
     Dates: start: 20210526, end: 20210528
  2. PREDNISONA (886A) [Suspect]
     Active Substance: PREDNISONE
     Dosage: 15MILLIGRAM
     Route: 048
     Dates: start: 20210507, end: 20210525
  3. PREDNISONA (886A) [Suspect]
     Active Substance: PREDNISONE
     Indication: PNEUMONIA
     Dosage: 10MILLIGRAM
     Route: 048
     Dates: start: 20150422, end: 20210506

REACTIONS (1)
  - Duodenal ulcer haemorrhage [Fatal]

NARRATIVE: CASE EVENT DATE: 20210528
